FAERS Safety Report 5895303-8 (Version None)
Quarter: 2008Q3

REPORT INFORMATION
  Report Type: 
  Country: None (occurrence: None)
  Receive Date: 20080924
  Receipt Date: 20080912
  Transmission Date: 20090109
  Serious: Yes (Disabling)
  Sender: FDA-Public Use
  Company Number: NO-ASTRAZENECA-2008SE04336

PATIENT
  Age: 73 Year
  Sex: Male

DRUGS (9)
  1. ATACAND HCT [Suspect]
     Indication: HYPERTENSION
     Route: 048
  2. SIMVASTATIN [Suspect]
     Route: 048
  3. BURINEX [Concomitant]
     Route: 048
  4. CARDURAN CR [Concomitant]
     Route: 048
  5. SELO-ZOK [Concomitant]
     Route: 048
  6. ALBYL-E [Concomitant]
     Route: 048
  7. PLAVIX [Concomitant]
     Route: 048
  8. AMLODIPINE [Concomitant]
     Route: 048
  9. NEXIUM [Concomitant]
     Route: 048

REACTIONS (1)
  - INTERSTITIAL LUNG DISEASE [None]
